FAERS Safety Report 6769373-9 (Version None)
Quarter: 2010Q2

REPORT INFORMATION
  Report Type: 
  Country: None (occurrence: None)
  Receive Date: 20100615
  Receipt Date: 20100610
  Transmission Date: 20101027
  Serious: Yes (Hospitalization)
  Sender: FDA-Public Use
  Company Number: FR-RB-011187-10

PATIENT
  Age: 38 Year
  Sex: Female

DRUGS (2)
  1. SUBUTEX [Suspect]
     Dosage: UNKNOWN DOSING DETAILS
     Route: 065
  2. SUBUTEX [Suspect]
     Dosage: UNKNOWN DOSING DETAILS
     Route: 042

REACTIONS (3)
  - INCORRECT ROUTE OF DRUG ADMINISTRATION [None]
  - NEPHROPATHY [None]
  - SUBSTANCE ABUSE [None]
